FAERS Safety Report 5779589-6 (Version None)
Quarter: 2008Q2

REPORT INFORMATION
  Report Type: 
  Country: None (occurrence: None)
  Receive Date: 20080619
  Receipt Date: 20080616
  Transmission Date: 20081010
  Serious: Yes (Hospitalization)
  Sender: FDA-Public Use
  Company Number: US-PFIZER INC-2008042134

PATIENT
  Sex: Female
  Weight: 122.72 kg

DRUGS (3)
  1. LIPITOR [Suspect]
     Indication: BLOOD CHOLESTEROL INCREASED
  2. ANTIHYPERTENSIVES [Concomitant]
  3. SYNTHROID [Concomitant]

REACTIONS (3)
  - DYSSTASIA [None]
  - PAIN [None]
  - RESTLESS LEGS SYNDROME [None]
